FAERS Safety Report 6985192-2 (Version None)
Quarter: 2010Q3

REPORT INFORMATION
  Report Type: 
  Country: None (occurrence: None)
  Receive Date: 20100914
  Receipt Date: 20100914
  Transmission Date: 20110219
  Serious: No
  Sender: FDA-Public Use
  Company Number: None

PATIENT
  Age: 66 Year
  Sex: Male

DRUGS (1)
  1. AUGMENTIN '125' [Suspect]
     Dates: start: 20081212, end: 20081215

REACTIONS (4)
  - DRUG HYPERSENSITIVITY [None]
  - HEPATITIS CHOLESTATIC [None]
  - LIVER INJURY [None]
  - SMOOTH MUSCLE ANTIBODY POSITIVE [None]
